FAERS Safety Report 24157505 (Version 3)
Quarter: 2024Q4

REPORT INFORMATION
  Report Type: Spontaneous
  Country: US (occurrence: US)
  Receive Date: 20240731
  Receipt Date: 20241230
  Transmission Date: 20250115
  Serious: No
  Sender: SANOFI AVENTIS
  Company Number: US-SA-2024SA219813

PATIENT
  Age: 49 Year
  Sex: Female

DRUGS (4)
  1. CABLIVI [Suspect]
     Active Substance: CAPLACIZUMAB-YHDP
     Indication: Immune thrombocytopenia
     Dosage: 11 MG, QD
     Route: 058
     Dates: start: 20231209
  2. CABLIVI [Suspect]
     Active Substance: CAPLACIZUMAB-YHDP
     Indication: Immune thrombocytopenia
     Dosage: 11 MG, QD
     Route: 058
     Dates: start: 20231209
  3. CABLIVI [Suspect]
     Active Substance: CAPLACIZUMAB-YHDP
     Indication: Immune thrombocytopenia
     Dosage: 11 MG, QD
     Route: 058
     Dates: start: 20231209
  4. CABLIVI [Suspect]
     Active Substance: CAPLACIZUMAB-YHDP
     Indication: Immune thrombocytopenia
     Dosage: 11 MG, QD
     Route: 058
     Dates: start: 20231209

REACTIONS (1)
  - Epistaxis [Unknown]
